FAERS Safety Report 5905169-5 (Version None)
Quarter: 2008Q4

REPORT INFORMATION
  Report Type: 
  Country: None (occurrence: None)
  Receive Date: 20081001
  Receipt Date: 20080922
  Transmission Date: 20090506
  Serious: Yes (Other)
  Sender: FDA-Public Use
  Company Number: IE-JNJCH-2008021016

PATIENT
  Sex: Female

DRUGS (2)
  1. CALPOL SIX PLUS [Suspect]
     Indication: MIGRAINE
     Dosage: TEXT:ON AND OFF FOR THE PAST 9 MONS
     Route: 048
  2. CALPOL SUGAR FREE [Suspect]
     Indication: MIGRAINE
     Dosage: TEXT:ONE DOSE ONCE
     Route: 048

REACTIONS (4)
  - COUGH [None]
  - DYSPNOEA [None]
  - SLEEP DISORDER [None]
  - WHEEZING [None]
